FAERS Safety Report 15777031 (Version 1)
Quarter: 2018Q4

REPORT INFORMATION
  Report Type: Spontaneous
  Country: JP (occurrence: JP)
  Receive Date: 20181231
  Receipt Date: 20181231
  Transmission Date: 20190205
  Serious: Yes (Other)
  Sender: FDA-Public Use
  Company Number: JP-PFIZER INC-2018513305

PATIENT
  Age: 52 Year
  Sex: Male

DRUGS (2)
  1. SOLANAX [Suspect]
     Active Substance: ALPRAZOLAM
     Dosage: UNK
     Dates: start: 20181126
  2. HERBAL NOS [Concomitant]
     Active Substance: HERBALS
     Dosage: UNK

REACTIONS (3)
  - Hepatitis B [Unknown]
  - Drug-induced liver injury [Unknown]
  - Arthralgia [Unknown]

NARRATIVE: CASE EVENT DATE: 2018
